FAERS Safety Report 20351351 (Version 2)
Quarter: 2022Q1

REPORT INFORMATION
  Report Type: Spontaneous
  Country: US (occurrence: US)
  Receive Date: 20220119
  Receipt Date: 20220308
  Transmission Date: 20220423
  Serious: No
  Sender: FDA-Public Use
  Company Number: US-PFIZER INC-202101852715

PATIENT
  Age: 7 Year
  Sex: Female
  Weight: 18.14 kg

DRUGS (1)
  1. GENOTROPIN [Suspect]
     Active Substance: SOMATROPIN
     Indication: Turner^s syndrome
     Dosage: 5 MG
     Dates: start: 202010

REACTIONS (3)
  - Device leakage [Unknown]
  - Incorrect dose administered [Unknown]
  - Expired device used [Unknown]

NARRATIVE: CASE EVENT DATE: 20211201
